FAERS Safety Report 17669522 (Version 1)
Quarter: 2020Q2

REPORT INFORMATION
  Report Type: Spontaneous
  Country: US (occurrence: US)
  Receive Date: 20200415
  Receipt Date: 20200415
  Transmission Date: 20200713
  Serious: Yes (Other)
  Sender: FDA-Public Use
  Company Number: US-SUNOVION-2020SUN001153

PATIENT
  Age: 67 Year
  Sex: Male

DRUGS (1)
  1. LATUDA [Suspect]
     Active Substance: LURASIDONE HYDROCHLORIDE
     Dosage: UNK
     Route: 048

REACTIONS (6)
  - Post-traumatic stress disorder [Unknown]
  - Bipolar disorder [Unknown]
  - Hip fracture [Unknown]
  - Depression [Unknown]
  - Fall [Unknown]
  - Anxiety [Unknown]
